FAERS Safety Report 8110999-8 (Version None)
Quarter: 2012Q1

REPORT INFORMATION
  Report Type: 
  Country: None (occurrence: None)
  Receive Date: 20120203
  Receipt Date: 20110207
  Transmission Date: 20120608
  Serious: No
  Sender: FDA-Public Use
  Company Number: US-GLAXOSMITHKLINE-A0912263A

PATIENT
  Age: 10 Year
  Sex: Male

DRUGS (3)
  1. PAXIL [Concomitant]
  2. ANTIHISTAMINE [Concomitant]
  3. LAMICTAL [Suspect]
     Indication: AFFECTIVE DISORDER
     Dosage: 25MG TWICE PER DAY
     Route: 048
     Dates: start: 20090801

REACTIONS (3)
  - SWELLING [None]
  - GENITAL RASH [None]
  - RASH ERYTHEMATOUS [None]
